FAERS Safety Report 15273323 (Version 3)
Quarter: 2019Q1

REPORT INFORMATION
  Report Type: Spontaneous
  Country: US (occurrence: US)
  Receive Date: 20180813
  Receipt Date: 20190206
  Transmission Date: 20190417
  Serious: Yes (Other)
  Sender: FDA-Public Use
  Company Number: US-PRINSTON PHARMACEUTICAL INC.-2018PRN00768

PATIENT
  Age: 63 Year
  Sex: Male
  Weight: 77.1 kg

DRUGS (12)
  1. VITAMIN D3 [Concomitant]
     Active Substance: CHOLECALCIFEROL
     Dosage: 2000 IU, 1X/DAY
     Route: 048
  2. UNKNOWN CHOLESTEROL MEDICATION [Concomitant]
     Active Substance: UNSPECIFIED INGREDIENT
     Dosage: UNK
  3. VALSARTAN AND HYDROCHLOROTHIAZIDE [Suspect]
     Active Substance: HYDROCHLOROTHIAZIDE\VALSARTAN
     Indication: HYPERTENSION
     Dosage: UNK
     Dates: start: 20160916
  4. VITAMIN B COMPLEX [Concomitant]
     Active Substance: CYANOCOBALAMIN\DEXPANTHENOL\NIACINAMIDE\PYRIDOXINE HYDROCHLORIDE\RIBOFLAVIN 5^-PHOSPHATE SODIUM\THIAMINE HYDROCHLORIDE\VITAMIN B COMPLEX
     Dosage: 1 CAPSULES, 1X/DAY
     Route: 048
  5. DIOVAN [Concomitant]
     Active Substance: VALSARTAN
  6. ASPIRIN. [Concomitant]
     Active Substance: ASPIRIN
     Dosage: 81 MG, 1X/DAY
     Route: 048
  7. ATORVASTATIN CALCIUM. [Concomitant]
     Active Substance: ATORVASTATIN CALCIUM
     Dosage: 40 MG, 1X/DAY
     Route: 048
     Dates: start: 20150828
  8. TAMSULOSIN [Concomitant]
     Active Substance: TAMSULOSIN
     Dosage: 0.4 MG, 1X/DAY
     Route: 048
     Dates: start: 20180613
  9. UNKNOWN WATER PILL [Concomitant]
     Active Substance: UNSPECIFIED INGREDIENT
  10. DEXILANT [Concomitant]
     Active Substance: DEXLANSOPRAZOLE
     Dosage: 60 MG, 1X/DAY
     Route: 048
  11. VALSARTAN AND HYDROCHLOROTHIAZIDE [Suspect]
     Active Substance: HYDROCHLOROTHIAZIDE\VALSARTAN
     Indication: HYPERTENSION
     Dosage: 1 TABLETS, 1X/DAY
     Route: 048
  12. PRAVASTATIN SODIUM. [Concomitant]
     Active Substance: PRAVASTATIN SODIUM

REACTIONS (19)
  - Transaminases increased [Unknown]
  - Polyuria [Unknown]
  - Type V hyperlipidaemia [Unknown]
  - Helicobacter gastritis [Unknown]
  - Blood lactate dehydrogenase increased [Unknown]
  - Essential hypertension [Unknown]
  - Skin cancer [Not Recovered/Not Resolved]
  - Prostatic specific antigen increased [Unknown]
  - Mitral valve disease [Unknown]
  - Intestinal metaplasia [Unknown]
  - Abnormal weight gain [Unknown]
  - Dysphonia [Unknown]
  - Oedema [Unknown]
  - Liver function test increased [Unknown]
  - Gastritis [Unknown]
  - Cough [Unknown]
  - High density lipoprotein decreased [Unknown]
  - Type 2 diabetes mellitus [Unknown]
  - Cerumen impaction [Unknown]

NARRATIVE: CASE EVENT DATE: 20120718
